FAERS Safety Report 11409405 (Version 1)
Quarter: 2015Q3

REPORT INFORMATION
  Report Type: Spontaneous
  Country: US (occurrence: None)
  Receive Date: 20150813
  Receipt Date: 20150813
  Transmission Date: 20151125
  Serious: Yes (Hospitalization)
  Sender: FDA-Public Use
  Company Number: 2014SE89803

PATIENT
  Age: 3 Month
  Sex: Female

DRUGS (1)
  1. SYNAGIS [Suspect]
     Active Substance: PALIVIZUMAB
     Route: 030
     Dates: start: 20141029

REACTIONS (4)
  - Diarrhoea [None]
  - Dehydration [None]
  - Bronchiolitis [None]
  - Respiratory syncytial virus test positive [None]

NARRATIVE: CASE EVENT DATE: 20141112
